FAERS Safety Report 7505907-4 (Version None)
Quarter: 2011Q2

REPORT INFORMATION
  Report Type: 
  Country: None (occurrence: None)
  Receive Date: 20110526
  Receipt Date: 20110520
  Transmission Date: 20111010
  Serious: Yes (Death, Other)
  Sender: FDA-Public Use
  Company Number: US-BAXTER-2011BH015464

PATIENT
  Age: 88 Year
  Sex: Female

DRUGS (1)
  1. DIANEAL [Suspect]
     Indication: PERITONEAL DIALYSIS
     Route: 033
     Dates: start: 20100101, end: 20110508

REACTIONS (5)
  - SEPSIS [None]
  - STERNAL FRACTURE [None]
  - DEATH [None]
  - RIB FRACTURE [None]
  - ADVERSE EVENT [None]
